FAERS Safety Report 4950030-6 (Version None)
Quarter: 2006Q1

REPORT INFORMATION
  Report Type: 
  Country: None (occurrence: None)
  Receive Date: 20060315
  Receipt Date: 20060222
  Transmission Date: 20060701
  Serious: Yes (Hospitalization)
  Sender: FDA-Public Use
  Company Number: NL200511002625

PATIENT
  Age: 70 Year
  Sex: Female

DRUGS (11)
  1. TERIPARATIDE (TERIPARATIDE) [Suspect]
     Indication: SPINAL FRACTURE
     Dosage: DAILY (1/D)
     Dates: start: 20050719
  2. FORTEO [Concomitant]
  3. ACETOSAL (ACETYLSALICYLIC ACID) [Concomitant]
  4. THYRAX (LEVOTHYROXINE) [Concomitant]
  5. SOTALOL HCL [Concomitant]
  6. FUROSEMIDE [Concomitant]
  7. ISOSORBIDE MONONITRATE [Concomitant]
  8. NEXIUM [Concomitant]
  9. CALCIUM WITH VITAMIN D (CALCIUM PHOSPHATE, CALCIUM SODIUM LACTATE, ERG [Suspect]
  10. OMEPRAZOLE [Concomitant]
  11. LACTULOSE [Concomitant]

REACTIONS (5)
  - ABDOMINAL PAIN UPPER [None]
  - CHOLELITHIASIS [None]
  - CONSTIPATION [None]
  - PANCREATIC DISORDER [None]
  - WEIGHT DECREASED [None]
